FAERS Safety Report 10247791 (Version 2)
Quarter: 2014Q3

REPORT INFORMATION
  Report Type: Spontaneous
  Country: US (occurrence: US)
  Receive Date: 20140619
  Receipt Date: 20140711
  Transmission Date: 20150326
  Serious: No
  Sender: FDA-Public Use
  Company Number: US-PFIZER INC-2014166713

PATIENT
  Age: 58 Year
  Sex: Male

DRUGS (4)
  1. OCUVITE [Concomitant]
     Active Substance: VITAMINS
     Dosage: 1 DF, 1X/DAY
  2. ALLOPURINOL. [Concomitant]
     Active Substance: ALLOPURINOL
     Dosage: 300 1 DF, 1X/DAY
  3. VIAGRA [Suspect]
     Active Substance: SILDENAFIL CITRATE
     Dosage: 100 MG, AS NEEDED 1/2 TAB PRN
     Route: 048
     Dates: start: 20140508, end: 20140529
  4. GINKO [Concomitant]
     Active Substance: GINKGO
     Dosage: 80 MG, ONE QD

REACTIONS (1)
  - Drug ineffective [Unknown]

NARRATIVE: CASE EVENT DATE: 201406
